FAERS Safety Report 7134472-9 (Version None)
Quarter: 2010Q4

REPORT INFORMATION
  Report Type: 
  Country: None (occurrence: None)
  Receive Date: 20101130
  Receipt Date: 20101130
  Transmission Date: 20110411
  Serious: Yes (Hospitalization)
  Sender: FDA-Public Use
  Company Number: None

PATIENT
  Age: 80 Year
  Sex: Female

DRUGS (9)
  1. CHLORTHALIDONE [Suspect]
     Indication: OEDEMA PERIPHERAL
     Dosage: 50 MG DAILY PO (RECENTLY STARTED)
     Route: 048
  2. ATENOLOL [Suspect]
     Indication: SUPRAVENTRICULAR TACHYCARDIA
     Dosage: 50MG DAILY PO
     Route: 048
  3. ASPIRIN [Concomitant]
  4. SOTALOL HCL [Concomitant]
  5. LIPITOR [Concomitant]
  6. PLAVIS [Concomitant]
  7. PANTOPRAZOLE [Concomitant]
  8. ENALAPRIL MALEATE [Concomitant]
  9. LOVAZA [Concomitant]

REACTIONS (9)
  - ATRIOVENTRICULAR BLOCK FIRST DEGREE [None]
  - FALL [None]
  - HYPONATRAEMIA [None]
  - HYPOPHAGIA [None]
  - OEDEMA PERIPHERAL [None]
  - ORTHOSTATIC HYPOTENSION [None]
  - POLYDIPSIA [None]
  - SINUS BRADYCARDIA [None]
  - SYNCOPE [None]
